FAERS Safety Report 6961567-2 (Version None)
Quarter: 2010Q3

REPORT INFORMATION
  Report Type: 
  Country: None (occurrence: None)
  Receive Date: 20100901
  Receipt Date: 20100823
  Transmission Date: 20110219
  Serious: Yes (Other)
  Sender: FDA-Public Use
  Company Number: US-AMGEN-QUU427937

PATIENT
  Sex: Female

DRUGS (3)
  1. NPLATE [Suspect]
     Indication: THROMBOCYTOPENIA
     Dates: start: 20100305, end: 20100701
  2. INTERFERON [Concomitant]
  3. NEUPOGEN [Concomitant]
     Route: 058
     Dates: start: 20100701

REACTIONS (1)
  - NEUTROPENIA [None]
